FAERS Safety Report 24309123 (Version 1)
Quarter: 2024Q3

REPORT INFORMATION
  Report Type: Spontaneous
  Country: CH (occurrence: CH)
  Receive Date: 20240911
  Receipt Date: 20240911
  Transmission Date: 20241016
  Serious: Yes (Other)
  Sender: GILEAD
  Company Number: CH-GILEAD-2024-0687149

PATIENT
  Sex: Female

DRUGS (1)
  1. YESCARTA [Suspect]
     Active Substance: AXICABTAGENE CILOLEUCEL
     Indication: Diffuse large B-cell lymphoma
     Dosage: 68 ML
     Route: 065
     Dates: start: 20210809, end: 20210809

REACTIONS (3)
  - B-cell aplasia [Unknown]
  - Immunoglobulins decreased [Unknown]
  - Infection [Unknown]
